FAERS Safety Report 18888692 (Version 1)
Quarter: 2021Q1

REPORT INFORMATION
  Report Type: Report from Study
  Country: CO (occurrence: CO)
  Receive Date: 20210212
  Receipt Date: 20210212
  Transmission Date: 20210420
  Serious: Yes (Other)
  Sender: FDA-Public Use
  Company Number: CO-TAKEDA-CO202020703

PATIENT

DRUGS (2)
  1. VELAGLUCERASE ALFA [Suspect]
     Active Substance: VELAGLUCERASE ALFA
     Indication: GAUCHER^S DISEASE
     Dosage: 2000 INTERNATIONAL UNIT, ACCORDING TO SCHEME, AS REPORTED
     Route: 042
     Dates: start: 20160311
  2. VELAGLUCERASE ALFA [Suspect]
     Active Substance: VELAGLUCERASE ALFA
     Dosage: 2000 INTERNATIONAL UNIT, Q2WEEKS
     Route: 042
     Dates: start: 201902

REACTIONS (6)
  - Blood pressure fluctuation [Unknown]
  - Musculoskeletal discomfort [Unknown]
  - Generalised tonic-clonic seizure [Unknown]
  - Pain in extremity [Unknown]
  - Agitation [Unknown]
  - Miosis [Unknown]

NARRATIVE: CASE EVENT DATE: 20200623
